FAERS Safety Report 5795858-8 (Version None)
Quarter: 2008Q3

REPORT INFORMATION
  Report Type: 
  Country: None (occurrence: None)
  Receive Date: 20080701
  Receipt Date: 20080617
  Transmission Date: 20090109
  Serious: Yes (Other)
  Sender: FDA-Public Use
  Company Number: IT-NOVOPROD-275200

PATIENT
  Sex: Female

DRUGS (2)
  1. NOVORAPID [Suspect]
     Indication: DIABETES MELLITUS
     Dosage: 10 IU, QD
     Dates: start: 20080101, end: 20080414
  2. NOVOLOG MIX 70/30 [Suspect]
     Indication: DIABETES MELLITUS
     Dosage: 22 IU, QD
     Dates: start: 20080101, end: 20080414

REACTIONS (1)
  - HYPOGLYCAEMIA [None]
